FAERS Safety Report 7999666-9 (Version None)
Quarter: 2011Q4

REPORT INFORMATION
  Report Type: 
  Country: None (occurrence: None)
  Receive Date: 20111221
  Receipt Date: 20111213
  Transmission Date: 20120403
  Serious: Yes (Hospitalization)
  Sender: FDA-Public Use
  Company Number: FR-ASTRAZENECA-2011SE76394

PATIENT
  Age: 29586 Day
  Sex: Female

DRUGS (10)
  1. FELODIPINE [Suspect]
     Indication: HYPERTENSION
     Route: 048
     Dates: start: 20111004, end: 20111005
  2. ACETAMINOPHEN [Concomitant]
  3. IRBESARTAN [Concomitant]
     Route: 048
  4. DIPYRIDAMOLE [Concomitant]
  5. SURGAM [Suspect]
     Indication: OSTEOARTHRITIS
     Route: 048
     Dates: start: 20111004, end: 20111005
  6. IRBESARTAN [Concomitant]
     Indication: HYPERTENSION
     Route: 048
     Dates: end: 20111004
  7. LASIX [Concomitant]
  8. NIFLURIL [Suspect]
     Indication: OSTEOARTHRITIS
     Route: 003
     Dates: end: 20111004
  9. QUITAXON [Concomitant]
  10. FENOFIBRATE [Concomitant]

REACTIONS (1)
  - RASH MACULO-PAPULAR [None]
